FAERS Safety Report 24111893 (Version 2)
Quarter: 2024Q3

REPORT INFORMATION
  Report Type: Spontaneous
  Country: US (occurrence: US)
  Receive Date: 20240718
  Receipt Date: 20240718
  Transmission Date: 20241016
  Serious: Yes (Hospitalization)
  Sender: ROCHE
  Company Number: US-ROCHE-10000030129

PATIENT
  Sex: Female

DRUGS (3)
  1. XOLAIR PFS [Suspect]
     Active Substance: OMALIZUMAB
     Indication: Idiopathic urticaria
     Route: 058
     Dates: start: 201907
  2. XOLAIR PFS [Suspect]
     Active Substance: OMALIZUMAB
  3. ZEPOSIA [Concomitant]
     Active Substance: OZANIMOD HYDROCHLORIDE

REACTIONS (4)
  - Idiopathic urticaria [Unknown]
  - Stress [Recovered/Resolved]
  - COVID-19 [Unknown]
  - Nephrolithiasis [Recovered/Resolved]
